FAERS Safety Report 6148767-9 (Version None)
Quarter: 2009Q2

REPORT INFORMATION
  Report Type: 
  Country: None (occurrence: None)
  Receive Date: 20090408
  Receipt Date: 20090331
  Transmission Date: 20091009
  Serious: Yes (Hospitalization)
  Sender: FDA-Public Use
  Company Number: US-BAXTER-2009BH004923

PATIENT
  Age: 64 Year
  Sex: Female

DRUGS (4)
  1. CYCLOPHOSPHAMIDE [Suspect]
     Indication: BREAST CANCER
     Route: 065
     Dates: start: 20081113, end: 20081113
  2. IXABEPILONE [Suspect]
     Indication: BREAST CANCER
     Route: 042
     Dates: start: 20081113, end: 20081113
  3. DOXORUBICIN HCL [Suspect]
     Indication: BREAST CANCER
     Route: 065
     Dates: start: 20081113, end: 20081113
  4. FILGRASTIM [Concomitant]
     Indication: DRUG USE FOR UNKNOWN INDICATION
     Route: 065
     Dates: start: 20081115, end: 20081116

REACTIONS (4)
  - ASTHENIA [None]
  - LEUKOCYTOSIS [None]
  - MALAISE [None]
  - PYREXIA [None]
